FAERS Safety Report 6874573-3 (Version None)
Quarter: 2010Q2

REPORT INFORMATION
  Report Type: 
  Country: None (occurrence: None)
  Receive Date: 20100609
  Receipt Date: 20100609
  Transmission Date: 20101027
  Serious: No
  Sender: FDA-Public Use
  Company Number: 2009-00277

PATIENT
  Age: 64 Year
  Sex: Male
  Weight: 79.3795 kg

DRUGS (6)
  1. ZICAM COLD REMEDY NASAL GEL [Suspect]
     Dosage: BID, 6-7 DAYS; MAR/APR2008-6-7 DAYS
     Dates: start: 20080101
  2. ZICAM COUGH MAX COUGH SPRAY [Suspect]
     Dosage: SPORADIC, 6-7 DAYS; MAR/APR2008-6-7 DAYS
  3. LIPITOR [Concomitant]
  4. MULTI-VITAMIN [Concomitant]
  5. FLAX SEED OIL [Concomitant]
  6. FLUTICASONE PROPONATE NASAL SPRAY [Concomitant]

REACTIONS (2)
  - AGEUSIA [None]
  - ANOSMIA [None]
